FAERS Safety Report 16582980 (Version 1)
Quarter: 2019Q3

REPORT INFORMATION
  Report Type: Spontaneous
  Country: FR (occurrence: FR)
  Receive Date: 20190717
  Receipt Date: 20190717
  Transmission Date: 20191004
  Serious: Yes (Other)
  Sender: FDA-Public Use
  Company Number: FR-PROVELL PHARMACEUTICALS-2070915

PATIENT
  Age: 47 Year
  Sex: Female
  Weight: 65 kg

DRUGS (5)
  1. EUTHYROX [Suspect]
     Active Substance: LEVOTHYROXINE SODIUM
     Indication: POST PROCEDURAL HYPOTHYROIDISM
     Route: 048
     Dates: start: 201704, end: 201708
  2. EUTHYROX [Suspect]
     Active Substance: LEVOTHYROXINE SODIUM
     Route: 048
     Dates: start: 20170714, end: 201708
  3. VASTAREL [Concomitant]
     Active Substance: TRIMETAZIDINE DIHYDROCHLORIDE
     Dates: start: 20050926
  4. TANGANIL [Concomitant]
     Active Substance: ACETYLLEUCINE
  5. ZECLAR [Concomitant]
     Active Substance: CLARITHROMYCIN
     Dates: start: 20041106

REACTIONS (30)
  - Alopecia [Recovered/Resolved]
  - Anxiety [Recovered/Resolved]
  - Neck pain [Recovered/Resolved]
  - Hyperthyroidism [Recovered/Resolved]
  - Muscle contracture [Recovered/Resolved]
  - Self esteem decreased [Recovered/Resolved]
  - Abdominal pain upper [None]
  - Limb discomfort [Recovered/Resolved]
  - Gastroenteritis [Recovered/Resolved]
  - Back pain [Recovered/Resolved]
  - Irritability [Recovered/Resolved]
  - Product dose omission [None]
  - Fatigue [Recovered/Resolved]
  - Paraesthesia [Recovered/Resolved]
  - Gait disturbance [Recovered/Resolved]
  - Vertigo [Recovered/Resolved]
  - Blood thyroid stimulating hormone abnormal [Recovered/Resolved]
  - Diarrhoea [Recovered/Resolved]
  - General physical health deterioration [Recovered/Resolved]
  - Nausea [Recovered/Resolved]
  - Pain [Recovered/Resolved]
  - Dry mouth [None]
  - Suicidal ideation [Recovered/Resolved]
  - Headache [Recovered/Resolved]
  - Disturbance in attention [Recovered/Resolved]
  - Mobility decreased [Recovered/Resolved]
  - Dysstasia [Recovered/Resolved]
  - Feeling abnormal [Recovered/Resolved]
  - Asthenia [Recovered/Resolved]
  - Weight decreased [Recovered/Resolved]

NARRATIVE: CASE EVENT DATE: 2017
